FAERS Safety Report 8478623 (Version 2)
Quarter: 2012Q4

REPORT INFORMATION
  Report Type: 
  Country: IL (occurrence: IL)
  Receive Date: 20120327
  Receipt Date: 20120912
  Transmission Date: 20130627
  Serious: Yes (Other)
  Sender: FDA-Public Use
  Company Number: IL-JNJFOC-20120309224

PATIENT
  Age: 71 Year
  Sex: Male

DRUGS (2)
  1. REMICADE [Suspect]
     Indication: CROHN^S DISEASE
     Route: 042
  2. REMICADE [Suspect]
     Indication: CROHN^S DISEASE
     Dosage: 2nd infusion
     Route: 042

REACTIONS (7)
  - Cyanosis [Unknown]
  - Dyspnoea [Unknown]
  - Infusion related reaction [Unknown]
  - Blood pressure increased [Unknown]
  - Chest discomfort [Unknown]
  - Ocular hyperaemia [Unknown]
  - Chills [Unknown]
